FAERS Safety Report 7550385-2 (Version None)
Quarter: 2011Q2

REPORT INFORMATION
  Report Type: 
  Country: None (occurrence: None)
  Receive Date: 20110615
  Receipt Date: 20110605
  Transmission Date: 20111010
  Serious: Yes (Hospitalization)
  Sender: FDA-Public Use
  Company Number: IL-ROCHE-773945

PATIENT
  Age: 63 Year
  Sex: Male

DRUGS (10)
  1. PEGASYS [Suspect]
     Indication: HEPATITIS C
     Route: 065
     Dates: start: 20060101, end: 20070101
  2. TRIBEMIN [Concomitant]
  3. CYMBALTA [Concomitant]
  4. GLUCOPHAGE [Concomitant]
  5. LANTON [Concomitant]
  6. LIPITOR [Concomitant]
     Dates: end: 20060101
  7. ESCITALOPRAM [Concomitant]
  8. RITALIN [Concomitant]
     Dosage: DRUG NAME: RITALIN LA.
  9. RIBAVIRIN [Suspect]
     Indication: HEPATITIS C
     Route: 065
     Dates: start: 20060101, end: 20070101
  10. ALFUZOSIN HCL [Concomitant]

REACTIONS (17)
  - WEIGHT DECREASED [None]
  - CHEST PAIN [None]
  - DYSPHONIA [None]
  - COGNITIVE DISORDER [None]
  - NIGHT SWEATS [None]
  - DEMENTIA [None]
  - DEPRESSION [None]
  - ASTHENIA [None]
  - DECREASED APPETITE [None]
  - PAROSMIA [None]
  - VOMITING [None]
  - ANHEDONIA [None]
  - MEMORY IMPAIRMENT [None]
  - MUSCLE ATROPHY [None]
  - HICCUPS [None]
  - DYSGEUSIA [None]
  - NAUSEA [None]
